FAERS Safety Report 17728341 (Version 1)
Quarter: 2020Q2

REPORT INFORMATION
  Report Type: Spontaneous
  Country: CA (occurrence: CA)
  Receive Date: 20200430
  Receipt Date: 20200430
  Transmission Date: 20200714
  Serious: Yes (Life-Threatening, Hospitalization)
  Sender: FDA-Public Use
  Company Number: CA-ACCORD-180166

PATIENT
  Age: 4 Year
  Sex: Female
  Weight: 16 kg

DRUGS (2)
  1. METHOTREXATE. [Suspect]
     Active Substance: METHOTREXATE
     Indication: PRODUCT USED FOR UNKNOWN INDICATION
  2. MERCAPTOPURINE/MERCAPTOPURINE ANHYDROUS [Suspect]
     Active Substance: MERCAPTOPURINE
     Indication: PRODUCT USED FOR UNKNOWN INDICATION

REACTIONS (3)
  - Febrile neutropenia [Unknown]
  - Respiratory syncytial virus infection [Unknown]
  - Upper respiratory tract infection [Unknown]
